FAERS Safety Report 7684836-X (Version None)
Quarter: 2011Q3

REPORT INFORMATION
  Report Type: 
  Country: None (occurrence: None)
  Receive Date: 20110816
  Receipt Date: 20110804
  Transmission Date: 20111222
  Serious: No
  Sender: FDA-Public Use
  Company Number: US-JNJFOC-20110804156

PATIENT
  Sex: Female
  Weight: 76.2 kg

DRUGS (14)
  1. MIRALAX [Concomitant]
     Indication: GASTROINTESTINAL DISORDER
     Route: 048
     Dates: start: 20080101
  2. REMERON [Concomitant]
     Indication: SLEEP DISORDER
     Route: 048
     Dates: start: 20070101
  3. MULTI-VITAMINS [Concomitant]
     Indication: GENERAL PHYSICAL CONDITION
     Route: 048
  4. FENTANYL [Suspect]
     Route: 062
     Dates: start: 20110802
  5. TRAZODONE HCL [Concomitant]
     Indication: SLEEP DISORDER
     Route: 048
  6. IMODIUM [Concomitant]
     Indication: GASTROINTESTINAL DISORDER
     Route: 048
  7. LACTULOSE [Concomitant]
     Indication: GASTROINTESTINAL DISORDER
     Route: 048
  8. FENTANYL [Suspect]
     Indication: ARTHRITIS
     Route: 062
     Dates: end: 20110802
  9. ZEGERID [Concomitant]
     Indication: GASTRIC DISORDER
     Route: 048
  10. KLONOPIN [Concomitant]
     Indication: ARTHRITIS
     Route: 048
  11. TRAMADOL HCL [Concomitant]
     Dosage: 4 TIMES DAILY
     Route: 048
  12. EFFEXOR [Concomitant]
     Indication: NEUROPATHY PERIPHERAL
     Route: 048
  13. ASCORBIC ACID [Concomitant]
     Indication: GENERAL PHYSICAL CONDITION
     Route: 048
     Dates: start: 20080101
  14. PLAQUENIL [Concomitant]
     Indication: ARTHRITIS
     Route: 048

REACTIONS (4)
  - PRODUCT QUALITY ISSUE [None]
  - HYPERHIDROSIS [None]
  - WRONG TECHNIQUE IN DRUG USAGE PROCESS [None]
  - DRUG INEFFECTIVE [None]
